FAERS Safety Report 18311897 (Version 2)
Quarter: 2021Q3

REPORT INFORMATION
  Report Type: Spontaneous
  Country: CA (occurrence: CA)
  Receive Date: 20200925
  Receipt Date: 20210904
  Transmission Date: 20211014
  Serious: Yes (Other)
  Sender: FDA-Public Use
  Company Number: CA-ACCORD-202269

PATIENT
  Age: 58 Year
  Sex: Male
  Weight: 98 kg

DRUGS (23)
  1. ELIQUIS [Concomitant]
     Active Substance: APIXABAN
  2. DIPHENHYDRAMINE. [Concomitant]
     Active Substance: DIPHENHYDRAMINE
  3. PROCHLORPERAZINE. [Concomitant]
     Active Substance: PROCHLORPERAZINE
  4. FLUOROURACIL. [Concomitant]
     Active Substance: FLUOROURACIL
     Dosage: 5?FU
  5. ATROPINE. [Concomitant]
     Active Substance: ATROPINE
  6. BISOPROLOL [Concomitant]
     Active Substance: BISOPROLOL
  7. LOPERAMIDE [Concomitant]
     Active Substance: LOPERAMIDE
  8. EMPAGLIFLOZIN/LINAGLIPTIN [Concomitant]
     Active Substance: EMPAGLIFLOZIN\LINAGLIPTIN
  9. IRINOTECAN [Suspect]
     Active Substance: IRINOTECAN
     Indication: COLON CANCER METASTATIC
     Dosage: SOLUTION INTRAVENOUS
     Route: 042
  10. ROSUVASTATIN/ROSUVASTATIN CALCIUM [Concomitant]
     Active Substance: ROSUVASTATIN CALCIUM
  11. IRON [Concomitant]
     Active Substance: IRON
  12. EMPAGLIFLOZIN [Concomitant]
     Active Substance: EMPAGLIFLOZIN
     Dosage: LINAGLIPTIN
  13. EPLERENONE. [Concomitant]
     Active Substance: EPLERENONE
  14. HUMALOG [Concomitant]
     Active Substance: INSULIN LISPRO
  15. LANSOPRAZOLE. [Concomitant]
     Active Substance: LANSOPRAZOLE
  16. VENLAFAXINE/VENLAFAXINE HYDROCHLORIDE [Concomitant]
     Active Substance: VENLAFAXINE HYDROCHLORIDE
  17. BEVACIZUMAB. [Suspect]
     Active Substance: BEVACIZUMAB
     Indication: COLON CANCER METASTATIC
     Route: 042
  18. CLOPIDOGREL [Concomitant]
     Active Substance: CLOPIDOGREL BISULFATE
  19. DEXAMETHASONE. [Concomitant]
     Active Substance: DEXAMETHASONE
     Dosage: LIQUID INTRA? ARTICULAR
     Route: 014
  20. FUROSEMIDE. [Concomitant]
     Active Substance: FUROSEMIDE
  21. ENTRESTO [Concomitant]
     Active Substance: SACUBITRIL\VALSARTAN
     Dosage: STRENGTH: 97 MG/103 MG
  22. METFORMIN [Concomitant]
     Active Substance: METFORMIN HYDROCHLORIDE
  23. ONDANSETRON [Concomitant]
     Active Substance: ONDANSETRON

REACTIONS (6)
  - Dehydration [Unknown]
  - Pyrexia [Unknown]
  - Atrial fibrillation [Unknown]
  - Product dose omission issue [Unknown]
  - Diarrhoea [Unknown]
  - Malaise [Unknown]
